FAERS Safety Report 21936096 (Version 1)
Quarter: 2023Q1

REPORT INFORMATION
  Report Type: Spontaneous
  Country: US (occurrence: US)
  Receive Date: 20230201
  Receipt Date: 20230201
  Transmission Date: 20230417
  Serious: No
  Sender: FDA-Public Use
  Company Number: US-Fresenius Medical Care Renal Therapies Group-FMC-2301-000112

PATIENT
  Age: 74 Year
  Sex: Female
  Weight: 96 kg

DRUGS (3)
  1. DELFLEX WITH DEXTROSE 1.5% LOW MAGNESIUM LOW CALCIUM [Suspect]
     Active Substance: CALCIUM CHLORIDE\DEXTROSE\MAGNESIUM CHLORIDE\SODIUM CHLORIDE\SODIUM LACTATE
     Indication: End stage renal disease
     Dosage: EXCHANGES = 3, FILL VOLUME = 1500 ML, DWELL TIME = 2.5 HOURS, LAST FILL = 1500 ML, DAYTIME EXCHANGE/
     Route: 033
  2. DELFLEX WITH DEXTROSE 2.5% LOW MAGNESIUM LOW CALCIUM [Suspect]
     Active Substance: CALCIUM CHLORIDE\DEXTROSE\MAGNESIUM CHLORIDE\SODIUM CHLORIDE\SODIUM LACTATE
     Indication: End stage renal disease
     Dosage: EXCHANGES = 3, FILL VOLUME = 1500 ML, DWELL TIME = 2.5 HOURS, LAST FILL = 1500 ML, DAYTIME EXCHANGE/
     Route: 033
  3. DELFLEX WITH DEXTROSE 4.25% LOW MAGNESIUM LOW CALCIUM [Suspect]
     Active Substance: CALCIUM CHLORIDE\DEXTROSE\MAGNESIUM CHLORIDE\SODIUM CHLORIDE\SODIUM LACTATE
     Indication: End stage renal disease
     Dosage: EXCHANGES = 3, FILL VOLUME = 1500 ML, DWELL TIME = 2.5 HOURS, LAST FILL = 1500 ML, DAYTIME EXCHANGE/
     Route: 033

REACTIONS (2)
  - Product selection error [Unknown]
  - Hypotension [Recovered/Resolved]

NARRATIVE: CASE EVENT DATE: 20230117
